FAERS Safety Report 26179657 (Version 1)
Quarter: 2025Q4

REPORT INFORMATION
  Report Type: Spontaneous
  Country: US (occurrence: US)
  Receive Date: 20251219
  Receipt Date: 20251219
  Transmission Date: 20260118
  Serious: Yes (Hospitalization)
  Sender: MYLAN
  Company Number: US-MYLANLABS-2025M1108071

PATIENT
  Age: 27 Year
  Sex: Male

DRUGS (16)
  1. SPIRONOLACTONE [Suspect]
     Active Substance: SPIRONOLACTONE
     Indication: Gender reassignment therapy
     Dosage: 100 MILLIGRAM
  2. SPIRONOLACTONE [Suspect]
     Active Substance: SPIRONOLACTONE
     Dosage: 100 MILLIGRAM
     Route: 065
  3. SPIRONOLACTONE [Suspect]
     Active Substance: SPIRONOLACTONE
     Dosage: 100 MILLIGRAM
     Route: 065
  4. SPIRONOLACTONE [Suspect]
     Active Substance: SPIRONOLACTONE
     Dosage: 100 MILLIGRAM
  5. ESTRADIOL [Suspect]
     Active Substance: ESTRADIOL
     Indication: Gender reassignment therapy
     Dosage: 40 MILLIGRAM, BIWEEKLY
  6. ESTRADIOL [Suspect]
     Active Substance: ESTRADIOL
     Dosage: 40 MILLIGRAM, BIWEEKLY
     Route: 065
  7. ESTRADIOL [Suspect]
     Active Substance: ESTRADIOL
     Dosage: 40 MILLIGRAM, BIWEEKLY
     Route: 065
  8. ESTRADIOL [Suspect]
     Active Substance: ESTRADIOL
     Dosage: 40 MILLIGRAM, BIWEEKLY
  9. PROGESTERONE [Suspect]
     Active Substance: PROGESTERONE
     Indication: Gender reassignment therapy
     Dosage: 100 MILLIGRAM, QD
  10. PROGESTERONE [Suspect]
     Active Substance: PROGESTERONE
     Dosage: 100 MILLIGRAM, QD
     Route: 065
  11. PROGESTERONE [Suspect]
     Active Substance: PROGESTERONE
     Dosage: 100 MILLIGRAM, QD
     Route: 065
  12. PROGESTERONE [Suspect]
     Active Substance: PROGESTERONE
     Dosage: 100 MILLIGRAM, QD
  13. HYDROXYUREA [Concomitant]
     Active Substance: HYDROXYUREA
     Indication: Sickle cell anaemia
     Dosage: 2000 MILLIGRAM
  14. HYDROXYUREA [Concomitant]
     Active Substance: HYDROXYUREA
     Dosage: 2000 MILLIGRAM
     Route: 065
  15. HYDROXYUREA [Concomitant]
     Active Substance: HYDROXYUREA
     Dosage: 2000 MILLIGRAM
     Route: 065
  16. HYDROXYUREA [Concomitant]
     Active Substance: HYDROXYUREA
     Dosage: 2000 MILLIGRAM

REACTIONS (1)
  - Retinal artery occlusion [Not Recovered/Not Resolved]
